FAERS Safety Report 5136709-4 (Version None)
Quarter: 2006Q4

REPORT INFORMATION
  Report Type: 
  Country: None (occurrence: None)
  Receive Date: 20061023
  Receipt Date: 20061016
  Transmission Date: 20070319
  Serious: Yes (Other)
  Sender: FDA-Public Use
  Company Number: GXKR2006DE06495

PATIENT
  Age: 74 Year
  Sex: Female
  Weight: 73.4 kg

DRUGS (4)
  1. METOHEXAL SUCC [Suspect]
     Indication: HYPERTENSION
     Dosage: 95 MG, QD, ORAL
     Route: 048
     Dates: start: 20061001, end: 20061008
  2. RAMIPRIL [Concomitant]
  3. SIMVASTATIN [Concomitant]
  4. HYDROCHLOROTHIAZIDE [Concomitant]

REACTIONS (3)
  - CONDITION AGGRAVATED [None]
  - HYPERTENSION [None]
  - THERAPEUTIC RESPONSE UNEXPECTED WITH DRUG SUBSTITUTION [None]
